FAERS Safety Report 6828153-6 (Version None)
Quarter: 2010Q3

REPORT INFORMATION
  Report Type: 
  Country: None (occurrence: None)
  Receive Date: 20100709
  Receipt Date: 20070129
  Transmission Date: 20110219
  Serious: No
  Sender: FDA-Public Use
  Company Number: US-PFIZER INC-2007008770

PATIENT
  Sex: Female
  Weight: 70.31 kg

DRUGS (8)
  1. CHANTIX [Suspect]
     Indication: SMOKING CESSATION THERAPY
     Dates: start: 20070118
  2. DEPAKOTE [Concomitant]
  3. KLONOPIN [Concomitant]
  4. PROTONIX [Concomitant]
  5. PREDNISONE [Concomitant]
  6. ACTONEL [Concomitant]
  7. ACETYLSALICYLIC ACID [Concomitant]
  8. NICODERM [Concomitant]
     Route: 062

REACTIONS (3)
  - DRUG INEFFECTIVE [None]
  - NIGHTMARE [None]
  - SLEEP DISORDER [None]
